FAERS Safety Report 23592458 (Version 3)
Quarter: 2024Q1

REPORT INFORMATION
  Report Type: Spontaneous
  Country: US (occurrence: US)
  Receive Date: 20240304
  Receipt Date: 20240327
  Transmission Date: 20240410
  Serious: Yes (Other)
  Sender: FDA-Public Use
  Company Number: US-ORGANON-O2402USA002948

PATIENT
  Age: 45 Year
  Sex: Female
  Weight: 106.8 kg

DRUGS (1)
  1. NEXPLANON [Suspect]
     Active Substance: ETONOGESTREL
     Dosage: 1 IMPLANT (RIGHT UPPER ARM)
     Route: 059
     Dates: start: 20210107

REACTIONS (5)
  - Uterine haemorrhage [Unknown]
  - Device expulsion [Unknown]
  - Complication associated with device [Unknown]
  - Incorrect product administration duration [Unknown]
  - Product dose omission issue [Unknown]

NARRATIVE: CASE EVENT DATE: 20220210
